FAERS Safety Report 23074798 (Version 2)
Quarter: 2025Q4

REPORT INFORMATION
  Report Type: Spontaneous
  Country: EU (occurrence: EU)
  Receive Date: 20231017
  Receipt Date: 20251228
  Transmission Date: 20260117
  Serious: Yes (Hospitalization, Other)
  Sender: SANOFI AVENTIS
  Company Number: None

PATIENT
  Age: 54 Year
  Sex: Female

DRUGS (26)
  1. DOCETAXEL [Suspect]
     Active Substance: DOCETAXEL
     Indication: Invasive ductal breast carcinoma
     Dosage: 1 DF,QCY
     Route: 042
     Dates: start: 2008, end: 2008
  2. DOCETAXEL [Suspect]
     Active Substance: DOCETAXEL
     Indication: Metastases to bone
     Dosage: UNK UNK, QCY
     Dates: start: 2008
  3. CYCLOPHOSPHAMIDE [Suspect]
     Active Substance: CYCLOPHOSPHAMIDE
     Indication: Invasive ductal breast carcinoma
     Dosage: 1 DF,QCY
     Route: 042
  4. CYCLOPHOSPHAMIDE [Suspect]
     Active Substance: CYCLOPHOSPHAMIDE
     Dosage: UNK, QCYCLE
  5. ZOLEDRONIC ACID [Suspect]
     Active Substance: ZOLEDRONIC ACID
     Indication: Invasive ductal breast carcinoma
     Dosage: 1 DF,QCY
     Route: 042
     Dates: start: 2008, end: 2008
  6. ZOLEDRONIC ACID [Suspect]
     Active Substance: ZOLEDRONIC ACID
     Indication: Metastases to bone
  7. CAPECITABINE [Suspect]
     Active Substance: CAPECITABINE
     Indication: Invasive ductal breast carcinoma
     Dosage: 1 DF,QCY
     Route: 042
     Dates: start: 2008, end: 2008
  8. CAPECITABINE [Suspect]
     Active Substance: CAPECITABINE
     Dosage: UNK UNK, QCY
     Dates: start: 2008
  9. GEMCITABINE HYDROCHLORIDE [Suspect]
     Active Substance: GEMCITABINE HYDROCHLORIDE
     Indication: Invasive ductal breast carcinoma
     Dosage: 1 DF,QCY
     Route: 065
     Dates: start: 2008, end: 2008
  10. GEMCITABINE HYDROCHLORIDE [Suspect]
     Active Substance: GEMCITABINE HYDROCHLORIDE
     Indication: Metastases to bone
  11. CARBOPLATIN [Suspect]
     Active Substance: CARBOPLATIN
     Indication: Invasive ductal breast carcinoma
     Dosage: 1 DF,QCY
     Route: 065
     Dates: start: 2008, end: 2008
  12. CARBOPLATIN [Suspect]
     Active Substance: CARBOPLATIN
     Indication: Metastases to bone
  13. PACLITAXEL [Suspect]
     Active Substance: PACLITAXEL
     Indication: Invasive ductal breast carcinoma
     Dosage: 1 DF,QCY
     Route: 065
     Dates: start: 2008, end: 2008
  14. BEVACIZUMAB [Suspect]
     Active Substance: BEVACIZUMAB
     Indication: Invasive ductal breast carcinoma
     Dosage: 1 DF,QCY
     Route: 065
     Dates: start: 2008, end: 2008
  15. BEVACIZUMAB [Suspect]
     Active Substance: BEVACIZUMAB
     Indication: Metastases to bone
  16. VINORELBINE TARTRATE [Suspect]
     Active Substance: VINORELBINE TARTRATE
     Indication: Invasive ductal breast carcinoma
     Dosage: 1 DF,QCY
     Route: 065
     Dates: start: 2008, end: 2008
  17. VINORELBINE TARTRATE [Suspect]
     Active Substance: VINORELBINE TARTRATE
     Indication: Metastases to bone
  18. DOXORUBICIN HYDROCHLORIDE [Suspect]
     Active Substance: DOXORUBICIN HYDROCHLORIDE
     Indication: Invasive ductal breast carcinoma
     Dosage: 1 DF,QCY
     Route: 065
     Dates: start: 2008, end: 2008
  19. DOXORUBICIN HYDROCHLORIDE [Suspect]
     Active Substance: DOXORUBICIN HYDROCHLORIDE
     Indication: Metastases to bone
  20. FLUOROURACIL [Suspect]
     Active Substance: FLUOROURACIL
     Indication: Invasive ductal breast carcinoma
     Dosage: 1 DF,QCY
     Route: 065
  21. ERIBULIN [Suspect]
     Active Substance: ERIBULIN
     Indication: Invasive ductal breast carcinoma
     Dosage: 1 DF,QCY
     Route: 042
     Dates: start: 2008, end: 2008
  22. ERIBULIN [Suspect]
     Active Substance: ERIBULIN
     Indication: Metastases to bone
  23. NOVANTRONE [Suspect]
     Active Substance: MITOXANTRONE HYDROCHLORIDE
     Indication: Invasive ductal breast carcinoma
     Dosage: 1 DF,QCY
     Route: 065
  24. INIPARIB [Suspect]
     Active Substance: INIPARIB
     Indication: Invasive ductal breast carcinoma
     Dosage: UNK, QCY
     Route: 042
     Dates: start: 2008, end: 2008
  25. INIPARIB [Suspect]
     Active Substance: INIPARIB
     Indication: Metastases to bone
  26. LETROZOLE [Concomitant]
     Active Substance: LETROZOLE
     Indication: Metastases to bone
     Dosage: UNK
     Route: 042

REACTIONS (9)
  - Disease progression [Unknown]
  - Malignant neoplasm progression [Unknown]
  - Metastases to bone marrow [Unknown]
  - Malignant neoplasm progression [Unknown]
  - Invasive ductal breast carcinoma [Unknown]
  - Anaemia [Unknown]
  - Disease progression [Unknown]
  - Thrombocytopenia [Unknown]
  - Product use in unapproved indication [Unknown]

NARRATIVE: CASE EVENT DATE: 20080101
